FAERS Safety Report 11044423 (Version 5)
Quarter: 2016Q1

REPORT INFORMATION
  Report Type: Spontaneous
  Country: US (occurrence: US)
  Receive Date: 20150417
  Receipt Date: 20160308
  Transmission Date: 20160525
  Serious: Yes (Hospitalization, Other)
  Sender: FDA-Public Use
  Company Number: US-PFIZER INC-2015132652

PATIENT
  Age: 57 Year
  Sex: Female
  Weight: 73 kg

DRUGS (5)
  1. CHANTIX [Suspect]
     Active Substance: VARENICLINE TARTRATE
     Dosage: UNK, 1X/DAY
     Dates: end: 201505
  2. KEPPRA [Concomitant]
     Active Substance: LEVETIRACETAM
     Indication: SEIZURE
     Dosage: UNK
  3. CHANTIX [Suspect]
     Active Substance: VARENICLINE TARTRATE
     Indication: SMOKING CESSATION THERAPY
     Dosage: 1 MG, 2X/DAY (ONE IN THE MORNING AND ONE AT NIGHT)
     Route: 048
     Dates: start: 201411, end: 2015
  4. CHANTIX [Suspect]
     Active Substance: VARENICLINE TARTRATE
     Dosage: 0.5 MG, 1X/DAY
     Route: 048
     Dates: start: 201411, end: 201509
  5. PRAMIPEXOLE. [Concomitant]
     Active Substance: PRAMIPEXOLE
     Indication: RESTLESS LEGS SYNDROME
     Dosage: 25 MG, 1X/DAY(ONCE AT NIGHT)
     Route: 048

REACTIONS (16)
  - Cerebrovascular accident [Recovered/Resolved with Sequelae]
  - Movement disorder [Unknown]
  - Sneezing [Unknown]
  - Seizure [Recovered/Resolved with Sequelae]
  - Pneumonia [Unknown]
  - Fall [Unknown]
  - Paralysis [Unknown]
  - Nausea [Unknown]
  - Hypertension [Recovered/Resolved]
  - Intracranial pressure increased [Recovering/Resolving]
  - Deafness [Unknown]
  - Amnesia [Recovering/Resolving]
  - Haemorrhage [Unknown]
  - Chills [Unknown]
  - Anxiety [Unknown]
  - Muscular weakness [Unknown]

NARRATIVE: CASE EVENT DATE: 2015
